FAERS Safety Report 9068548 (Version 1)
Quarter: 2013Q1

REPORT INFORMATION
  Report Type: Spontaneous
  Country: US (occurrence: None)
  Receive Date: 20130212
  Receipt Date: 20130212
  Transmission Date: 20140127
  Serious: Yes (Other)
  Sender: FDA-Public Use
  Company Number: None

PATIENT
  Sex: Female

DRUGS (1)
  1. FORTEO 600MCG LILLY [Suspect]
     Dosage: 20MCG  DAILY  SUBQ
     Route: 058
     Dates: start: 20121221, end: 20130131

REACTIONS (4)
  - Vision blurred [None]
  - Night blindness [None]
  - Arthralgia [None]
  - Musculoskeletal pain [None]
